FAERS Safety Report 4699177-2 (Version None)
Quarter: 2005Q2

REPORT INFORMATION
  Report Type: 
  Country: None (occurrence: None)
  Receive Date: 20050624
  Receipt Date: 20050614
  Transmission Date: 20051028
  Serious: Yes (Other)
  Sender: FDA-Public Use
  Company Number: BR-JNJFOC-20050604968

PATIENT
  Sex: Male

DRUGS (2)
  1. REMINYL [Suspect]
     Route: 065
  2. PLAVIX [Concomitant]
     Route: 065

REACTIONS (1)
  - HEPATITIS [None]
